FAERS Safety Report 10219609 (Version 1)
Quarter: 2014Q2

REPORT INFORMATION
  Report Type: Spontaneous
  Country: US (occurrence: US)
  Receive Date: 20140605
  Receipt Date: 20140605
  Transmission Date: 20141212
  Serious: Yes (Death, Congenital Anomaly)
  Sender: FDA-Public Use
  Company Number: US-GLAXOSMITHKLINE-B0999509B

PATIENT
  Sex: 0

DRUGS (5)
  1. ACYCLOVIR [Suspect]
     Indication: HERPES SIMPLEX
     Route: 064
  2. PIPERACILLIN + TAZOBACTAM [Suspect]
     Indication: HERPES SIMPLEX
     Route: 064
  3. AZITHROMYCIN [Suspect]
     Indication: HERPES SIMPLEX
     Route: 064
  4. FOSCARNET [Suspect]
     Indication: HERPES SIMPLEX
     Route: 064
  5. MISOPROSTOL [Suspect]
     Indication: LABOUR INDUCTION
     Dosage: 50UG FOUR TIMES PER DAY
     Route: 064

REACTIONS (6)
  - Schizencephaly [Unknown]
  - Ascites [Unknown]
  - Abdominal distension [Unknown]
  - Death [Fatal]
  - Stillbirth [Unknown]
  - Foetal exposure during pregnancy [Unknown]
